FAERS Safety Report 16265418 (Version 2)
Quarter: 2020Q2

REPORT INFORMATION
  Report Type: Spontaneous
  Country: US (occurrence: US)
  Receive Date: 20190502
  Receipt Date: 20200504
  Transmission Date: 20200713
  Serious: No
  Sender: FDA-Public Use
  Company Number: US-SA-2019SA118916

PATIENT
  Age: 70 Year
  Sex: Male

DRUGS (2)
  1. PRALUENT [Suspect]
     Active Substance: ALIROCUMAB
     Indication: BLOOD CHOLESTEROL ABNORMAL
     Dosage: 150 MG, QOW
     Route: 058
     Dates: start: 20200423
  2. PRALUENT [Suspect]
     Active Substance: ALIROCUMAB
     Indication: ENDOCRINE DISORDER
     Dosage: 150 MG, QOW
     Route: 058
     Dates: start: 20171206, end: 202004

REACTIONS (2)
  - Rash [Not Recovered/Not Resolved]
  - Tinnitus [Not Recovered/Not Resolved]

NARRATIVE: CASE EVENT DATE: 201904
